FAERS Safety Report 6355469-2 (Version None)
Quarter: 2009Q3

REPORT INFORMATION
  Report Type: 
  Country: None (occurrence: None)
  Receive Date: 20090914
  Receipt Date: 20090904
  Transmission Date: 20100115
  Serious: Yes (Hospitalization, Other)
  Sender: FDA-Public Use
  Company Number: US-AMGEN-QUU356232

PATIENT
  Sex: Female

DRUGS (11)
  1. ENBREL [Suspect]
     Indication: PSORIASIS
     Route: 058
     Dates: start: 20071030, end: 20090716
  2. ASPIRIN [Concomitant]
  3. UNSPECIFIED MEDICATION [Concomitant]
  4. ANTIHYPERTENSIVE MEDICATION NOS [Concomitant]
  5. UNIRETIC [Concomitant]
  6. EFFEXOR [Concomitant]
  7. SIMVASTATIN [Concomitant]
  8. MAXALT [Concomitant]
  9. NASACORT [Concomitant]
  10. ATENOLOL [Concomitant]
  11. CALCIPOTRIENE [Concomitant]
     Route: 061

REACTIONS (5)
  - ANAEMIA [None]
  - GASTROENTERITIS VIRAL [None]
  - HEADACHE [None]
  - IDIOPATHIC THROMBOCYTOPENIC PURPURA [None]
  - PAIN [None]
